FAERS Safety Report 20220206 (Version 3)
Quarter: 2022Q2

REPORT INFORMATION
  Report Type: Report from Study
  Country: US (occurrence: US)
  Receive Date: 20211223
  Receipt Date: 20220608
  Transmission Date: 20220721
  Serious: No
  Sender: FDA-Public Use
  Company Number: US-NOVARTISTESTPH-NVSC2021US293994

PATIENT
  Sex: Male

DRUGS (2)
  1. ENTRESTO [Suspect]
     Active Substance: SACUBITRIL\VALSARTAN
     Indication: Product used for unknown indication
     Dosage: 1 DOSAGE FORM, (24/26 MG), BID
     Route: 048
     Dates: start: 202110
  2. UNSPECIFIED INGREDIENT [Concomitant]
     Active Substance: UNSPECIFIED INGREDIENT
     Indication: Product used for unknown indication
     Dosage: UNK, (STARTED 2 WEEKS AFTER BEING STARTED ON ENTRESTO)
     Route: 065

REACTIONS (4)
  - Dizziness postural [Unknown]
  - Hypotension [Unknown]
  - Pollakiuria [Unknown]
  - Weight fluctuation [Unknown]
